FAERS Safety Report 6826638-X (Version None)
Quarter: 2010Q3

REPORT INFORMATION
  Report Type: 
  Country: None (occurrence: None)
  Receive Date: 20100709
  Receipt Date: 20100701
  Transmission Date: 20110219
  Serious: Yes (Other)
  Sender: FDA-Public Use
  Company Number: FR-PFIZER INC-2010068506

PATIENT
  Age: 92 Year
  Sex: Male
  Weight: 70 kg

DRUGS (3)
  1. TAHOR [Suspect]
     Indication: MYOCARDIAL ISCHAEMIA
     Dosage: 10 MG, 1X/DAY
     Route: 048
     Dates: start: 20060402, end: 20100605
  2. SECTRAL [Concomitant]
     Indication: CARDIAC DISORDER
     Dosage: 1 DF, 1X/DAY
     Route: 048
     Dates: start: 20070101
  3. KARDEGIC [Concomitant]
     Indication: CARDIAC DISORDER
     Dosage: 1 DF, 1X/DAY
     Route: 048
     Dates: start: 20070101

REACTIONS (5)
  - ASTHENIA [None]
  - BALANCE DISORDER [None]
  - FALL [None]
  - PARALYSIS [None]
  - VERTIGO [None]
